FAERS Safety Report 12796991 (Version 7)
Quarter: 2016Q4

REPORT INFORMATION
  Report Type: Report from Study
  Country: US (occurrence: US)
  Receive Date: 20160929
  Receipt Date: 20161207
  Transmission Date: 20170207
  Serious: Yes (Hospitalization)
  Sender: FDA-Public Use
  Company Number: US-ACTELION-A-US2016-142736

PATIENT
  Age: 76 Year
  Sex: Male

DRUGS (5)
  1. VELETRI [Suspect]
     Active Substance: EPOPROSTENOL
     Dosage: 8 NG/KG/MIN
     Route: 042
  2. SILDENAFIL. [Concomitant]
     Active Substance: SILDENAFIL
  3. VELETRI [Suspect]
     Active Substance: EPOPROSTENOL
     Indication: PULMONARY ARTERIAL HYPERTENSION
     Dosage: 6.5 NG/KG, PER MIN
     Route: 042
     Dates: start: 20160919
  4. OPSUMIT [Suspect]
     Active Substance: MACITENTAN
     Indication: PULMONARY ARTERIAL HYPERTENSION
     Dosage: 10 MG, QD
     Route: 048
     Dates: start: 20160627
  5. OXYGEN. [Concomitant]
     Active Substance: OXYGEN
     Dosage: 7 L/MIN, UNK

REACTIONS (14)
  - Seasonal allergy [Unknown]
  - Fatigue [Unknown]
  - Rash [Unknown]
  - Influenza like illness [Unknown]
  - Pain in jaw [Unknown]
  - Flushing [Unknown]
  - Rhinorrhoea [Unknown]
  - Pain in extremity [Unknown]
  - Nausea [Recovered/Resolved]
  - Headache [Unknown]
  - Chills [Unknown]
  - Diarrhoea [Recovered/Resolved]
  - Pain [Unknown]
  - Oxygen saturation decreased [Unknown]
